FAERS Safety Report 20812502 (Version 2)
Quarter: 2022Q3

REPORT INFORMATION
  Report Type: Spontaneous
  Country: ES (occurrence: ES)
  Receive Date: 20220511
  Receipt Date: 20220705
  Transmission Date: 20221027
  Serious: Yes (Other)
  Sender: FDA-Public Use
  Company Number: None

PATIENT
  Age: 53 Year
  Sex: Male

DRUGS (13)
  1. BUSULFAN [Suspect]
     Active Substance: BUSULFAN
     Indication: Prophylaxis against graft versus host disease
     Dates: start: 202005
  2. BENDAMUSTINE [Suspect]
     Active Substance: BENDAMUSTINE
     Indication: Disease recurrence
     Dates: start: 201905
  3. SIROLIMUS [Suspect]
     Active Substance: SIROLIMUS
     Indication: Prophylaxis against graft versus host disease
  4. MYCOPHENOLATE MOFETIL [Suspect]
     Active Substance: MYCOPHENOLATE MOFETIL
     Indication: Prophylaxis against graft versus host disease
  5. BRENTUXIMAB VEDOTIN [Suspect]
     Active Substance: BRENTUXIMAB VEDOTIN
     Indication: Disease recurrence
     Dosage: CYCLICAL
     Dates: start: 201905
  6. FLUDARABINE [Suspect]
     Active Substance: FLUDARABINE PHOSPHATE
     Indication: Prophylaxis against graft versus host disease
     Dates: start: 202005
  7. IFOSFAMIDE [Suspect]
     Active Substance: IFOSFAMIDE
     Indication: Disease progression
     Dosage: NIVOLUMAB AND IFOSFAMIDE, CARBOPLATIN AND ETOPOSIDE COMBINATION THERAPY
     Dates: start: 202004
  8. IFOSFAMIDE [Suspect]
     Active Substance: IFOSFAMIDE
     Indication: Disease recurrence
  9. CYCLOPHOSPHAMIDE [Suspect]
     Active Substance: CYCLOPHOSPHAMIDE
     Indication: Prophylaxis against graft versus host disease
  10. NIVOLUMAB [Concomitant]
     Active Substance: NIVOLUMAB
     Indication: Disease progression
     Dosage: NIVOLUMAB AND IFOSFAMIDE, CARBOPLATIN AND ETOPOSIDE COMBINATION THERAPY
     Dates: start: 202004
  11. NIVOLUMAB [Concomitant]
     Active Substance: NIVOLUMAB
     Dosage: CYCLICAL
     Dates: start: 201908
  12. CARBOPLATIN [Concomitant]
     Active Substance: CARBOPLATIN
     Indication: Disease progression
     Dates: start: 202004
  13. ETOPOSIDE [Concomitant]
     Active Substance: ETOPOSIDE
     Indication: Disease progression
     Dates: start: 202004

REACTIONS (5)
  - Disease progression [Unknown]
  - Drug ineffective [Unknown]
  - Therapy partial responder [Unknown]
  - Drug dependence [Unknown]
  - Off label use [Unknown]
